FAERS Safety Report 6720292-3 (Version None)
Quarter: 2010Q2

REPORT INFORMATION
  Report Type: 
  Country: None (occurrence: None)
  Receive Date: 20100511
  Receipt Date: 20100430
  Transmission Date: 20101027
  Serious: Yes (Hospitalization)
  Sender: FDA-Public Use
  Company Number: PE-PFIZER INC-2007011368

PATIENT
  Age: 65 Year
  Sex: Male
  Weight: 66 kg

DRUGS (4)
  1. SUNITINIB MALATE [Suspect]
     Indication: METASTATIC RENAL CELL CARCINOMA
     Dosage: 50 MG, 1X/DAY
     Route: 048
     Dates: start: 20061227
  2. CIPROFLOXACIN [Concomitant]
     Route: 048
     Dates: start: 20070123, end: 20070206
  3. CLINDAMYCIN [Concomitant]
     Route: 048
     Dates: start: 20070124, end: 20070206
  4. RANITIDINE [Concomitant]
     Route: 048
     Dates: start: 20070123

REACTIONS (1)
  - SUBDURAL HAEMATOMA [None]
